FAERS Safety Report 24143733 (Version 2)
Quarter: 2024Q3

REPORT INFORMATION
  Report Type: Report from Study
  Country: US (occurrence: US)
  Receive Date: 20240727
  Receipt Date: 20240813
  Transmission Date: 20241017
  Serious: No
  Sender: ABBVIE
  Company Number: US-ABBVIE-5852529

PATIENT
  Age: 38 Year
  Sex: Female
  Weight: 77.11 kg

DRUGS (2)
  1. LILETTA [Suspect]
     Active Substance: LEVONORGESTREL
     Indication: Contraception
     Dosage: TIME INTERVAL: AS NECESSARY
     Route: 015
     Dates: start: 20240626, end: 20240718
  2. LILETTA [Suspect]
     Active Substance: LEVONORGESTREL
     Indication: Polymenorrhoea

REACTIONS (2)
  - Menstrual clots [Recovered/Resolved]
  - Device expulsion [Recovered/Resolved]

NARRATIVE: CASE EVENT DATE: 20240717
